FAERS Safety Report 13958301 (Version 13)
Quarter: 2018Q1

REPORT INFORMATION
  Report Type: Spontaneous
  Country: US (occurrence: US)
  Receive Date: 20170912
  Receipt Date: 20180312
  Transmission Date: 20180508
  Serious: Yes (Hospitalization, Other)
  Sender: FDA-Public Use
  Company Number: US-PFIZER INC-2017367872

PATIENT
  Age: 87 Year
  Sex: Male
  Weight: 88.44 kg

DRUGS (36)
  1. ARANESP [Concomitant]
     Active Substance: DARBEPOETIN ALFA
     Dosage: UNK, AS NEEDED (EVERY TWO WEEK)
  2. LIPITOR [Concomitant]
     Active Substance: ATORVASTATIN CALCIUM
     Dosage: UNK
  3. LASIX [Concomitant]
     Active Substance: FUROSEMIDE
     Dosage: 20 MG, DAILY
  4. SENNA [Concomitant]
     Active Substance: SENNA LEAF\SENNOSIDES\SENNOSIDES A AND B
     Dosage: UNK
  5. VITAMIN D3 [Concomitant]
     Active Substance: CHOLECALCIFEROL
     Dosage: 1000 IU, UNK
  6. FERROUS SULFATE. [Concomitant]
     Active Substance: FERROUS SULFATE
     Dosage: UNK
  7. METOPROLOL. [Concomitant]
     Active Substance: METOPROLOL
     Dosage: 75 MG, 1X/DAY
  8. SYMBICORT [Concomitant]
     Active Substance: BUDESONIDE\FORMOTEROL FUMARATE DIHYDRATE
     Dosage: UNK
  9. XGEVA [Concomitant]
     Active Substance: DENOSUMAB
     Dosage: UNK
  10. MULTIVITAMINES WITH IRON [Concomitant]
     Dosage: UNK
  11. SUTENT [Suspect]
     Active Substance: SUNITINIB MALATE
     Dosage: 37.5 MG, CYCLIC (ONCE A DAY ON IT FOR 2 WEEKS AND OFF FOR 2 WEEKS)
  12. BABY ASPIRIN [Concomitant]
     Active Substance: ASPIRIN
     Dosage: UNK
  13. PRILOSEC [Concomitant]
     Active Substance: OMEPRAZOLE MAGNESIUM
     Dosage: UNK
  14. CARBIDOPA AND LEVODOPA [Concomitant]
     Active Substance: CARBIDOPA\LEVODOPA
     Indication: ESSENTIAL TREMOR
     Dosage: UNK
  15. ASPIRIN. [Concomitant]
     Active Substance: ASPIRIN
     Dosage: 81 MG, DAILY
  16. BUMETANIDE. [Concomitant]
     Active Substance: BUMETANIDE
     Indication: OEDEMA
     Dosage: 1 MG, 2X/DAY
     Dates: start: 2017
  17. SUTENT [Suspect]
     Active Substance: SUNITINIB MALATE
     Indication: RENAL CANCER STAGE IV
     Dosage: UNK, CYCLIC (EVERY DAY FOR 2 WEEKS, OFF FOR 2 WEEKS)
     Dates: start: 20170927
  18. SUTENT [Suspect]
     Active Substance: SUNITINIB MALATE
     Dosage: 25 MG, CYCLIC (2 WEEKS ON/2 WEEKS OFF)
  19. SUTENT [Suspect]
     Active Substance: SUNITINIB MALATE
     Dosage: 25 MG, CYCLIC (2 WEEKS ON/2 WEEKS OFF)
     Dates: start: 20170830
  20. CARBIDOPA. [Concomitant]
     Active Substance: CARBIDOPA
     Dosage: UNK
  21. HYDRALAZINE [Concomitant]
     Active Substance: HYDRALAZINE HYDROCHLORIDE
     Indication: BLOOD PRESSURE ABNORMAL
     Dosage: UNK
  22. FLOMAX [Concomitant]
     Active Substance: TAMSULOSIN HYDROCHLORIDE
     Dosage: UNK
  23. ATORVASTATIN [Concomitant]
     Active Substance: ATORVASTATIN
     Dosage: UNK
  24. LEVOTHYROXINE. [Concomitant]
     Active Substance: LEVOTHYROXINE
     Indication: THYROID DISORDER
     Dosage: UNK
     Dates: start: 2017
  25. ALBUTEROL. [Concomitant]
     Active Substance: ALBUTEROL
     Dosage: UNK
  26. CHOLECALCIFEROL [Concomitant]
     Active Substance: CHOLECALCIFEROL
     Dosage: UNK
  27. DOCUSATE SODIUM. [Concomitant]
     Active Substance: DOCUSATE SODIUM
     Dosage: UNK
  28. ISOSORBIDE. [Concomitant]
     Active Substance: ISOSORBIDE
     Dosage: 30 MG, 1X/DAY
  29. DOXYCYCLINE. [Concomitant]
     Active Substance: DOXYCYCLINE
     Dosage: UNK
  30. METOLAZONE. [Concomitant]
     Active Substance: METOLAZONE
     Dosage: UNK
  31. PRESERVISION [Concomitant]
     Active Substance: MINERALS\VITAMINS
     Indication: EYE DISORDER
     Dosage: UNK
     Route: 047
  32. OMEPRAZOLE. [Concomitant]
     Active Substance: OMEPRAZOLE
     Indication: GASTROOESOPHAGEAL REFLUX DISEASE
     Dosage: UNK UNK, 2X/DAY
  33. SUTENT [Suspect]
     Active Substance: SUNITINIB MALATE
     Dosage: 37.5 MG, 1X/DAY (WEEKS ON/2 WEEKS OFF)
     Route: 048
     Dates: start: 20170830
  34. LASIX [Concomitant]
     Active Substance: FUROSEMIDE
     Indication: ASCITES
     Dosage: 40 MG, DAILY
  35. ALLOPURINOL. [Concomitant]
     Active Substance: ALLOPURINOL
     Indication: GOUT
     Dosage: UNK
     Dates: start: 2017
  36. TAMSULOSIN [Concomitant]
     Active Substance: TAMSULOSIN
     Indication: PROSTATIC DISORDER
     Dosage: 0.4 MG, UNK

REACTIONS (24)
  - Fluid overload [Recovering/Resolving]
  - Dyspnoea [Not Recovered/Not Resolved]
  - Condition aggravated [Not Recovered/Not Resolved]
  - Blood iron decreased [Unknown]
  - Weight increased [Recovering/Resolving]
  - Dysgeusia [Unknown]
  - Anaemia [Not Recovered/Not Resolved]
  - Abdominal distension [Not Recovered/Not Resolved]
  - Cardiac failure congestive [Recovering/Resolving]
  - Drug prescribing error [Unknown]
  - Abdominal pain upper [Unknown]
  - Abdominal discomfort [Not Recovered/Not Resolved]
  - Asthenia [Unknown]
  - Vomiting [Recovered/Resolved]
  - Neoplasm progression [Unknown]
  - Swelling [Unknown]
  - Somnolence [Unknown]
  - Gait disturbance [Unknown]
  - Renal disorder [Unknown]
  - Weight decreased [Recovering/Resolving]
  - Nausea [Not Recovered/Not Resolved]
  - Pain [Unknown]
  - Malaise [Not Recovered/Not Resolved]
  - Fatigue [Recovered/Resolved]

NARRATIVE: CASE EVENT DATE: 2017
